FAERS Safety Report 16689856 (Version 1)
Quarter: 2019Q3

REPORT INFORMATION
  Report Type: Spontaneous
  Country: US (occurrence: US)
  Receive Date: 20190809
  Receipt Date: 20190809
  Transmission Date: 20191004
  Serious: Yes (Other)
  Sender: FDA-Public Use
  Company Number: US-SAOL THERAPEUTICS-2019SAO00322

PATIENT
  Sex: Male

DRUGS (2)
  1. LIORESAL [Suspect]
     Active Substance: BACLOFEN
     Dosage: PROGRAMMED TO MININUM RATE
     Route: 037
     Dates: start: 201908
  2. LIORESAL [Suspect]
     Active Substance: BACLOFEN
     Dosage: 350 ?G, \DAY
     Route: 037
     Dates: end: 201908

REACTIONS (3)
  - Hip surgery [Recovered/Resolved]
  - Device damage [Not Recovered/Not Resolved]
  - Drug withdrawal syndrome [Not Recovered/Not Resolved]

NARRATIVE: CASE EVENT DATE: 2019
